FAERS Safety Report 10495439 (Version 1)
Quarter: 2014Q3

REPORT INFORMATION
  Report Type: Spontaneous
  Country: US (occurrence: None)
  Receive Date: 20140815
  Receipt Date: 20140815
  Transmission Date: 20150326
  Serious: Yes (Hospitalization, Other)
  Sender: FDA-Public Use
  Company Number: ADR-2014-00444

PATIENT
  Age: 57 Year
  Sex: Male

DRUGS (2)
  1. BACLOFEN 4,000MCG/ML [Suspect]
     Active Substance: BACLOFEN
     Indication: PAIN
  2. DILAUDID [Suspect]
     Active Substance: HYDROMORPHONE HYDROCHLORIDE

REACTIONS (4)
  - Drug withdrawal syndrome [None]
  - Underdose [None]
  - Agitation [None]
  - Mental status changes [None]

NARRATIVE: CASE EVENT DATE: 20140314
